FAERS Safety Report 23048481 (Version 2)
Quarter: 2023Q4

REPORT INFORMATION
  Report Type: Report from Study
  Country: CH (occurrence: CH)
  Receive Date: 20231010
  Receipt Date: 20231016
  Transmission Date: 20240110
  Serious: Yes (Hospitalization)
  Sender: FDA-Public Use
  Company Number: CH-ABBVIE-5439676

PATIENT
  Sex: Male

DRUGS (3)
  1. CARBIDOPA\LEVODOPA [Suspect]
     Active Substance: CARBIDOPA\LEVODOPA
     Indication: Parkinson^s disease
     Dosage: MD: 5.0 ML, CRD: 3.3 ML/H,  ED: 1.0 ML?16H THERAPY
     Route: 050
     Dates: start: 20220614, end: 20220928
  2. CARBIDOPA\LEVODOPA [Suspect]
     Active Substance: CARBIDOPA\LEVODOPA
     Dosage: 16H THERAPY
     Route: 050
     Dates: start: 20190820
  3. CARBIDOPA\LEVODOPA [Suspect]
     Active Substance: CARBIDOPA\LEVODOPA
     Dosage: MD: 5.0 ML, CRD: 3.3 ML/H,  ED: 1.0 ML?FREQUENCY TEXT: 16H THERAPY
     Route: 050
     Dates: start: 20220928

REACTIONS (3)
  - Pneumonia aspiration [Not Recovered/Not Resolved]
  - Enteral nutrition [Not Recovered/Not Resolved]
  - Weight decreased [Not Recovered/Not Resolved]
